FAERS Safety Report 8601449-3 (Version None)
Quarter: 2012Q3

REPORT INFORMATION
  Report Type: 
  Country: None (occurrence: None)
  Receive Date: 20120817
  Receipt Date: 20110805
  Transmission Date: 20120928
  Serious: Yes (Other)
  Sender: FDA-Public Use
  Company Number: US-BRISTOL-MYERS SQUIBB COMPANY-15951924

PATIENT
  Age: 48 Year
  Sex: Female

DRUGS (2)
  1. HYDREA [Suspect]
     Indication: CHRONIC MYELOID LEUKAEMIA
  2. SPRYCEL [Suspect]
     Indication: CHRONIC MYELOID LEUKAEMIA

REACTIONS (1)
  - CENTRAL NERVOUS SYSTEM HAEMORRHAGE [None]
